FAERS Safety Report 8976586 (Version 1)
Quarter: 2012Q4

REPORT INFORMATION
  Report Type: 
  Country: US (occurrence: US)
  Receive Date: 20121219
  Receipt Date: 20121219
  Transmission Date: 20130627
  Serious: No
  Sender: FDA-Public Use
  Company Number: US-AMGEN-USASP2012060589

PATIENT
  Age: 55 Year
  Sex: Female
  Weight: 73.02 kg

DRUGS (1)
  1. XGEVA [Suspect]
     Indication: METASTASES TO BONE
     Dosage: 120 mg, one time dose
     Route: 058
     Dates: start: 20120618, end: 20120618

REACTIONS (1)
  - Rash [Recovered/Resolved]
